FAERS Safety Report 7292547-8 (Version None)
Quarter: 2011Q1

REPORT INFORMATION
  Report Type: 
  Country: None (occurrence: None)
  Receive Date: 20110215
  Receipt Date: 20110207
  Transmission Date: 20110831
  Serious: Yes (Hospitalization)
  Sender: FDA-Public Use
  Company Number: US-BAYER-2011-013090

PATIENT
  Sex: Male
  Weight: 10 kg

DRUGS (1)
  1. ASPIRIN [Suspect]
     Indication: ACCIDENTAL DRUG INTAKE BY CHILD
     Dosage: 10 DF, UNK
     Route: 048

REACTIONS (3)
  - DIARRHOEA [None]
  - VOMITING [None]
  - URINE OUTPUT DECREASED [None]
